FAERS Safety Report 9284355 (Version 1)
Quarter: 2013Q2

REPORT INFORMATION
  Report Type: Spontaneous
  Country: BR (occurrence: BR)
  Receive Date: 20130510
  Receipt Date: 20130510
  Transmission Date: 20140414
  Serious: Yes (Other)
  Sender: FDA-Public Use
  Company Number: BR-PFIZER INC-2013141245

PATIENT
  Age: 74 Year
  Sex: Male

DRUGS (2)
  1. XALATAN [Suspect]
     Dosage: UNK
     Dates: start: 2009, end: 20121106
  2. LOSARTAN [Concomitant]
     Dosage: UNK
     Dates: start: 20090506

REACTIONS (1)
  - Eye disorder [Unknown]
